FAERS Safety Report 5909731-5 (Version None)
Quarter: 2008Q4

REPORT INFORMATION
  Report Type: 
  Country: None (occurrence: None)
  Receive Date: 20081007
  Receipt Date: 20080930
  Transmission Date: 20090506
  Serious: Yes (Hospitalization, Other)
  Sender: FDA-Public Use
  Company Number: US-CELGENEUS-163-20785-06060249

PATIENT
  Sex: Male
  Weight: 83.99 kg

DRUGS (16)
  1. THALOMID [Suspect]
     Indication: MYELOFIBROSIS
     Route: 048
     Dates: start: 20060327, end: 20060601
  2. THALOMID [Suspect]
     Route: 048
     Dates: start: 20060731
  3. FLOMAX [Concomitant]
     Indication: DRUG USE FOR UNKNOWN INDICATION
     Route: 065
  4. NEXIUM [Concomitant]
     Indication: DRUG USE FOR UNKNOWN INDICATION
     Route: 065
  5. ALLOPURINOL [Concomitant]
     Indication: DRUG USE FOR UNKNOWN INDICATION
     Route: 065
  6. COLCHICINE [Concomitant]
     Indication: DRUG USE FOR UNKNOWN INDICATION
     Route: 065
  7. FOLIC ACID [Concomitant]
     Indication: DRUG USE FOR UNKNOWN INDICATION
     Route: 065
  8. ASCORBIC ACID [Concomitant]
     Indication: DRUG USE FOR UNKNOWN INDICATION
     Route: 065
  9. PREDNISONE [Concomitant]
     Indication: DRUG USE FOR UNKNOWN INDICATION
     Route: 065
  10. PREDNISONE [Concomitant]
     Route: 065
  11. ASPIRIN [Concomitant]
     Indication: DRUG USE FOR UNKNOWN INDICATION
     Route: 065
  12. TOPAMAX [Concomitant]
     Indication: DRUG USE FOR UNKNOWN INDICATION
     Route: 065
  13. SYNTHROID [Concomitant]
     Indication: THYROID DISORDER
     Route: 065
  14. FERROUS SULFATE TAB [Concomitant]
     Indication: DRUG USE FOR UNKNOWN INDICATION
     Route: 065
  15. NEUPOGEN [Concomitant]
     Indication: DRUG USE FOR UNKNOWN INDICATION
     Route: 065
  16. PROCRIT [Concomitant]
     Dosage: 40K
     Route: 065
     Dates: start: 20040701

REACTIONS (8)
  - ARNOLD-CHIARI MALFORMATION [None]
  - CELLULITIS [None]
  - FATIGUE [None]
  - NEUROPATHY PERIPHERAL [None]
  - OEDEMA PERIPHERAL [None]
  - PAIN IN EXTREMITY [None]
  - RASH [None]
  - VERTIGO [None]
